FAERS Safety Report 9889295 (Version 2)
Quarter: 2014Q1

REPORT INFORMATION
  Report Type: Spontaneous
  Country: US (occurrence: US)
  Receive Date: 20140211
  Receipt Date: 20140311
  Transmission Date: 20141002
  Serious: No
  Sender: FDA-Public Use
  Company Number: US-GILEAD-2014-0093980

PATIENT
  Sex: Female

DRUGS (3)
  1. SOVALDI [Suspect]
     Indication: HEPATITIS C
     Dosage: UNK, BID
     Route: 048
  2. SOVALDI [Suspect]
     Dosage: 400 MG, QD
     Route: 048
  3. RIBAPAK [Concomitant]

REACTIONS (2)
  - Flushing [Recovered/Resolved]
  - Accidental overdose [Recovered/Resolved]
